FAERS Safety Report 9942394 (Version 2)
Quarter: 2014Q1

REPORT INFORMATION
  Report Type: Spontaneous
  Country: US (occurrence: US)
  Receive Date: 20140303
  Receipt Date: 20140319
  Transmission Date: 20141002
  Serious: No
  Sender: FDA-Public Use
  Company Number: US-PFIZER INC-2014060247

PATIENT
  Age: 76 Year
  Sex: Male
  Weight: 86.17 kg

DRUGS (2)
  1. VIAGRA [Suspect]
     Indication: ERECTILE DYSFUNCTION
     Dosage: UNK, AS NEEDED
     Dates: start: 2013
  2. VIAGRA [Suspect]
     Dosage: 100 MG, SINGLE
     Dates: start: 201401

REACTIONS (1)
  - Drug ineffective [Unknown]
